FAERS Safety Report 8999673 (Version 1)
Quarter: 2013Q1

REPORT INFORMATION
  Report Type: Spontaneous
  Country: US (occurrence: US)
  Receive Date: 20130102
  Receipt Date: 20130102
  Transmission Date: 20140127
  Serious: No
  Sender: FDA-Public Use
  Company Number: US-PFIZER INC-2012334352

PATIENT
  Sex: Female

DRUGS (1)
  1. XANAX [Suspect]
     Indication: ANXIETY
     Dosage: 0.5 MG, 1X/DAY
     Route: 048
     Dates: end: 20121231

REACTIONS (3)
  - Drug ineffective [Unknown]
  - Sleep disorder [Unknown]
  - Local swelling [Unknown]
